FAERS Safety Report 23044744 (Version 6)
Quarter: 2024Q1

REPORT INFORMATION
  Report Type: Spontaneous
  Country: AU (occurrence: AU)
  Receive Date: 20231009
  Receipt Date: 20240104
  Transmission Date: 20240410
  Serious: Yes (Hospitalization, Other)
  Sender: FDA-Public Use
  Company Number: AU-MYLANLABS-2023M1104023

PATIENT
  Age: 64 Year
  Sex: Male

DRUGS (2)
  1. CLOZARIL [Suspect]
     Active Substance: CLOZAPINE
     Indication: Schizophrenia
     Dosage: 350 MILLIGRAM
     Route: 048
     Dates: start: 20230807, end: 20231204
  2. VALPROATE SODIUM [Concomitant]
     Active Substance: VALPROATE SODIUM
     Dosage: UNK
     Route: 065

REACTIONS (6)
  - Fall [Unknown]
  - Leukopenia [Recovering/Resolving]
  - Delirium [Unknown]
  - Malaise [Unknown]
  - Laboratory test abnormal [Not Recovered/Not Resolved]
  - Neutrophil count decreased [Recovered/Resolved]

NARRATIVE: CASE EVENT DATE: 20230928
